FAERS Safety Report 7150885-3 (Version None)
Quarter: 2010Q4

REPORT INFORMATION
  Report Type: 
  Country: None (occurrence: None)
  Receive Date: 20101124
  Receipt Date: 20101116
  Transmission Date: 20110411
  Serious: No
  Sender: FDA-Public Use
  Company Number: 2010005974

PATIENT
  Sex: Male

DRUGS (3)
  1. FENTORA [Suspect]
     Indication: RESTLESS LEGS SYNDROME
     Dosage: 400 MCG, BU
     Route: 002
  2. REQUIP [Concomitant]
  3. KLONOPIN [Concomitant]

REACTIONS (1)
  - DRUG PRESCRIBING ERROR [None]
